FAERS Safety Report 9994949 (Version 2)
Quarter: 2014Q1

REPORT INFORMATION
  Report Type: Spontaneous
  Country: US (occurrence: US)
  Receive Date: 20140311
  Receipt Date: 20140311
  Transmission Date: 20141002
  Serious: Yes (Death)
  Sender: FDA-Public Use
  Company Number: US-GE HEALTHCARE MEDICAL DIAGNOSTICS-OSCN-PR-1010S-0259

PATIENT
  Sex: Male

DRUGS (7)
  1. OMNISCAN [Suspect]
     Indication: PRODUCT USED FOR UNKNOWN INDICATION
     Route: 042
     Dates: start: 20011112, end: 20011112
  2. OMNISCAN [Suspect]
     Route: 042
     Dates: start: 20060904, end: 20060904
  3. OMNISCAN [Suspect]
     Route: 042
     Dates: start: 20070215, end: 20070215
  4. GADOLINIUM (UNSPECIFIED) [Suspect]
     Indication: PRODUCT USED FOR UNKNOWN INDICATION
     Route: 042
     Dates: start: 20020507, end: 20020507
  5. GADOLINIUM (UNSPECIFIED) [Suspect]
     Route: 042
     Dates: start: 20061212, end: 20061212
  6. NEURONTIN [Concomitant]
  7. OXYCODONE [Concomitant]

REACTIONS (1)
  - Nephrogenic systemic fibrosis [Fatal]
